FAERS Safety Report 6113107-8 (Version None)
Quarter: 2009Q1

REPORT INFORMATION
  Report Type: 
  Country: None (occurrence: None)
  Receive Date: 20090312
  Receipt Date: 20090302
  Transmission Date: 20090719
  Serious: Yes (Hospitalization)
  Sender: FDA-Public Use
  Company Number: GB-MERCK-0903USA00446

PATIENT
  Age: 43 Year
  Sex: Female

DRUGS (20)
  1. PRINIVIL [Suspect]
     Route: 048
     Dates: end: 20081013
  2. IRBESARTAN [Suspect]
     Route: 048
     Dates: end: 20081013
  3. ACOMPLIA [Suspect]
     Indication: OBESITY
     Route: 048
     Dates: start: 20070629, end: 20081013
  4. SPIRONOLACTONE [Suspect]
     Route: 048
     Dates: end: 20081013
  5. ASPIRIN [Concomitant]
     Route: 048
  6. ATENOLOL [Concomitant]
     Route: 048
  7. ATORVASTATIN [Concomitant]
     Route: 048
  8. CODEINE [Concomitant]
     Route: 048
  9. FUROSEMIDE [Concomitant]
     Route: 048
  10. NITROGLYCERIN [Concomitant]
     Route: 060
  11. ISOSORBIDE MONONITRATE [Concomitant]
     Route: 048
  12. PSYLLIUM HUSK [Concomitant]
     Route: 048
  13. LIDOCAINE [Concomitant]
     Route: 061
  14. NITRAZEPAM [Concomitant]
     Route: 048
  15. OMEGA-3 MARINE TRIGLYCERIDES [Concomitant]
     Route: 048
  16. OMEPRAZOLE [Concomitant]
     Route: 048
  17. ACETAMINOPHEN [Concomitant]
     Route: 048
  18. QUININE SULFATE [Concomitant]
     Route: 048
  19. TRIMETHOPRIM [Concomitant]
     Route: 048
  20. VESICARE [Concomitant]
     Route: 065

REACTIONS (12)
  - BACK PAIN [None]
  - DEHYDRATION [None]
  - DYSPEPSIA [None]
  - FEAR OF EATING [None]
  - GASTROOESOPHAGEAL REFLUX DISEASE [None]
  - HYPERTENSION [None]
  - OEDEMA [None]
  - OLIGURIA [None]
  - PYREXIA [None]
  - RECTAL HAEMORRHAGE [None]
  - RENAL FAILURE ACUTE [None]
  - WEIGHT INCREASED [None]
